FAERS Safety Report 20856189 (Version 4)
Quarter: 2022Q2

REPORT INFORMATION
  Report Type: Report from Study
  Country: CN (occurrence: CN)
  Receive Date: 20220520
  Receipt Date: 20220622
  Transmission Date: 20220720
  Serious: Yes (Hospitalization)
  Sender: FDA-Public Use
  Company Number: CN-PFIZER INC-202200716442

PATIENT
  Age: 71 Year
  Sex: Male
  Weight: 64 kg

DRUGS (7)
  1. TALAZOPARIB [Suspect]
     Active Substance: TALAZOPARIB
     Indication: Prostate cancer metastatic
     Dosage: 1X/DAY
     Route: 048
     Dates: start: 20210818, end: 20211110
  2. TALAZOPARIB [Suspect]
     Active Substance: TALAZOPARIB
     Dosage: 1X/DAY
     Route: 048
     Dates: start: 20211209, end: 20220513
  3. ENZALUTAMIDE [Suspect]
     Active Substance: ENZALUTAMIDE
     Indication: Prostate cancer metastatic
     Dosage: 160 MG, 1X/DAY
     Route: 048
     Dates: start: 20210818, end: 20211117
  4. ENZALUTAMIDE [Suspect]
     Active Substance: ENZALUTAMIDE
     Dosage: 160 MG, 1X/DAY
     Route: 048
     Dates: start: 20211125, end: 20220513
  5. TAMSULOSIN HYDROCHLORIDE [Concomitant]
     Active Substance: TAMSULOSIN HYDROCHLORIDE
     Indication: Dysuria
     Dosage: 0.2 MG EXTENDED RELEASE, BID
     Route: 048
     Dates: start: 20220310
  6. ESTAZOLAM [Concomitant]
     Active Substance: ESTAZOLAM
     Indication: Sleep disorder
     Dosage: 2 MG, AS NEEDED
     Route: 048
     Dates: start: 202110
  7. NIFEDIPINE [Concomitant]
     Active Substance: NIFEDIPINE
     Indication: Hypertension
     Dosage: 30 MG CONTROLLED-RELEASE, QD
     Route: 048
     Dates: start: 20220409

REACTIONS (4)
  - Back pain [Recovered/Resolved]
  - Arthralgia [Recovered/Resolved]
  - Arthralgia [Recovered/Resolved]
  - Abdominal pain upper [Recovered/Resolved]

NARRATIVE: CASE EVENT DATE: 20220315
